FAERS Safety Report 9411493 (Version 1)
Quarter: 2013Q3

REPORT INFORMATION
  Report Type: Spontaneous
  Country: US (occurrence: None)
  Receive Date: 20130718
  Receipt Date: 20130718
  Transmission Date: 20140515
  Serious: Yes (Other)
  Sender: FDA-Public Use
  Company Number: None

PATIENT
  Age: 68 Year
  Sex: Female

DRUGS (7)
  1. COMBIVENT RESPIMAT [Suspect]
     Indication: CHRONIC OBSTRUCTIVE PULMONARY DISEASE
     Dosage: 20 AND 100 MCG, 1 PUFF, 4 TIMES DAILY, SPRAYED IN BACK OF MOUTH
     Dates: start: 20130710, end: 20130711
  2. ADVAIR DISKUS [Concomitant]
  3. COMBIVENT INHALER [Concomitant]
  4. THEO-24 [Concomitant]
  5. ATORVASTATIN [Concomitant]
  6. ALENDRONATE [Concomitant]
  7. OMEPRAZOLE [Concomitant]

REACTIONS (3)
  - Dry throat [None]
  - Throat irritation [None]
  - Chest pain [None]
